FAERS Safety Report 15092725 (Version 2)
Quarter: 2018Q3

REPORT INFORMATION
  Report Type: Report from Study
  Country: US (occurrence: US)
  Receive Date: 20180629
  Receipt Date: 20180731
  Transmission Date: 20181010
  Serious: Yes (Hospitalization)
  Sender: FDA-Public Use
  Company Number: US-JNJFOC-20180638221

PATIENT
  Age: 24 Year
  Sex: Female
  Weight: 81.19 kg

DRUGS (1)
  1. REMICADE [Suspect]
     Active Substance: INFLIXIMAB
     Indication: INFLAMMATORY BOWEL DISEASE
     Route: 042
     Dates: start: 20090416

REACTIONS (1)
  - Stoma site pain [Recovered/Resolved]

NARRATIVE: CASE EVENT DATE: 20180416
